FAERS Safety Report 5067362-6 (Version None)
Quarter: 2006Q3

REPORT INFORMATION
  Report Type: 
  Country: None (occurrence: None)
  Receive Date: 20060714
  Receipt Date: 20060612
  Transmission Date: 20061208
  Serious: No
  Sender: FDA-Public Use
  Company Number: 2006SP002368

PATIENT
  Age: 68 Year
  Sex: Female
  Weight: 68.0396 kg

DRUGS (6)
  1. LUNESTA [Suspect]
     Indication: POOR QUALITY SLEEP
     Dosage: 2 MG;HS;ORAL
     Route: 048
     Dates: start: 20050101
  2. TAMOXIFEN CITRATE [Concomitant]
  3. LEVOXYL [Concomitant]
  4. PROPRANOLOL [Concomitant]
  5. ATORVASTATIN CALCIUM [Concomitant]
  6. SUMATRIPTAN SUCCINATE [Concomitant]

REACTIONS (2)
  - DRUG INEFFECTIVE [None]
  - INSOMNIA [None]
